FAERS Safety Report 5075941-5 (Version None)
Quarter: 2006Q3

REPORT INFORMATION
  Report Type: 
  Country: None (occurrence: None)
  Receive Date: 20060809
  Receipt Date: 20060614
  Transmission Date: 20061208
  Serious: Yes (Other)
  Sender: FDA-Public Use
  Company Number: US-AMGEN-US180706

PATIENT
  Sex: Male

DRUGS (12)
  1. ARANESP [Suspect]
     Indication: ANAEMIA OF MALIGNANT DISEASE
     Route: 058
     Dates: start: 20060224, end: 20060303
  2. PAXIL [Concomitant]
  3. MICARDIS [Concomitant]
  4. ASPIRIN [Concomitant]
  5. MULTIVITAMIN [Concomitant]
  6. IRON [Concomitant]
  7. COMPAZINE [Concomitant]
  8. ATIVAN [Concomitant]
  9. TESSALON [Concomitant]
  10. VITAMIN B-12 [Concomitant]
  11. PREDNISONE [Concomitant]
     Dates: start: 20060607
  12. CYTOXAN [Concomitant]
     Dates: start: 20060607

REACTIONS (1)
  - APLASIA PURE RED CELL [None]
